FAERS Safety Report 7807929-2 (Version None)
Quarter: 2011Q4

REPORT INFORMATION
  Report Type: 
  Country: None (occurrence: None)
  Receive Date: 20111011
  Receipt Date: 20111011
  Transmission Date: 20120403
  Serious: No
  Sender: FDA-Public Use
  Company Number: None

PATIENT
  Age: 31 Year
  Sex: Male
  Weight: 74.842 kg

DRUGS (1)
  1. CIPROFLOXACIN [Suspect]
     Indication: OTITIS MEDIA
     Dosage: 750MG
     Route: 048
     Dates: start: 20080102, end: 20080112

REACTIONS (9)
  - TINNITUS [None]
  - MUSCLE SPASMS [None]
  - TENDONITIS [None]
  - FEELING ABNORMAL [None]
  - NEUROPATHY PERIPHERAL [None]
  - PAIN IN EXTREMITY [None]
  - HEADACHE [None]
  - ABASIA [None]
  - NECK PAIN [None]
